FAERS Safety Report 9258639 (Version 1)
Quarter: 2013Q2

REPORT INFORMATION
  Report Type: Spontaneous
  Country: US (occurrence: US)
  Receive Date: 20130426
  Receipt Date: 20130426
  Transmission Date: 20140414
  Serious: Yes (Other)
  Sender: FDA-Public Use
  Company Number: US-PFIZER INC-2013122635

PATIENT
  Age: 61 Year
  Sex: Female
  Weight: 61.22 kg

DRUGS (3)
  1. ZOLOFT [Suspect]
     Indication: ANXIETY
  2. ADVAIR [Concomitant]
     Indication: ASTHMA
     Dosage: FLUTICASONE 100 UG/ SALMETEROL 50 UG, TWICE DAILY
     Route: 055
     Dates: start: 1998
  3. ZOLOFT [Suspect]
     Indication: DEPRESSION
     Dosage: 150 MG, 1X/DAY
     Dates: start: 199803, end: 201010

REACTIONS (1)
  - Breast cancer [Recovered/Resolved]
